FAERS Safety Report 5908322-X (Version None)
Quarter: 2008Q4

REPORT INFORMATION
  Report Type: 
  Country: None (occurrence: None)
  Receive Date: 20081006
  Receipt Date: 20080930
  Transmission Date: 20090506
  Serious: Yes (Hospitalization, Other)
  Sender: FDA-Public Use
  Company Number: FR-BRISTOL-MYERS SQUIBB COMPANY-14306872

PATIENT
  Age: 46 Year
  Sex: Female

DRUGS (8)
  1. MODECATE [Suspect]
     Indication: PSYCHOTIC DISORDER
     Dosage: FORM = SOLUTION, STRENGTH 125MG, DURATION: 16WEEK5DAY.
     Route: 030
     Dates: start: 20080509, end: 20080902
  2. SEGLOR [Interacting]
     Indication: MIGRAINE
     Dosage: FORMULATION: CAPSULE, STRENGTH:5MG
     Route: 048
     Dates: start: 20080503
  3. NARAMIG [Interacting]
     Route: 065
     Dates: start: 20080701
  4. IMOVANE [Concomitant]
     Indication: INSOMNIA
     Dosage: 1 DF= 1UNIT
     Route: 048
     Dates: start: 20070125
  5. LEPTICUR [Concomitant]
     Route: 048
     Dates: start: 20080203
  6. NOZINAN [Concomitant]
     Indication: ANXIETY
     Route: 048
     Dates: start: 20080228, end: 20080826
  7. PROPOXYPHENE HCL AND ACETAMINOPHEN [Concomitant]
     Indication: PAIN
     Dosage: 1 DOSAGE FORM = 6 UNIT
     Route: 048
     Dates: start: 20080813
  8. TRANSIPEG [Concomitant]
     Indication: CONSTIPATION
     Route: 048
     Dates: start: 20080813

REACTIONS (4)
  - DRUG INTERACTION [None]
  - INJECTION SITE CYST [None]
  - INJECTION SITE FIBROSIS [None]
  - INJECTION SITE NECROSIS [None]
